FAERS Safety Report 13729444 (Version 1)
Quarter: 2017Q3

REPORT INFORMATION
  Report Type: Spontaneous
  Country: FR (occurrence: FR)
  Receive Date: 20170707
  Receipt Date: 20170707
  Transmission Date: 20171127
  Serious: Yes (Hospitalization, Disabling, Other)
  Sender: FDA-Public Use
  Company Number: FR-009507513-1706FRA011158

PATIENT
  Age: 56 Year
  Sex: Female

DRUGS (16)
  1. ZOCOR [Suspect]
     Active Substance: SIMVASTATIN
     Dosage: 20 MG, QD
     Route: 048
  2. TRIATEC (RAMIPRIL) [Concomitant]
     Active Substance: RAMIPRIL
     Dosage: UNK
  3. ZOVIRAX [Concomitant]
     Active Substance: ACYCLOVIR
     Dosage: UNK
  4. LEDERFOLINE [Concomitant]
     Active Substance: LEUCOVORIN CALCIUM
     Dosage: UNK
  5. NEORAL [Suspect]
     Active Substance: CYCLOSPORINE
     Dosage: 225 MG (125 IN THE MORNING AND 100 MG IN THE EVENING), QD
  6. ARESTAL [Concomitant]
     Active Substance: LOPERAMIDE OXIDE
     Dosage: UNK
  7. XANAX [Concomitant]
     Active Substance: ALPRAZOLAM
     Dosage: UNK
  8. CELLCEPT [Concomitant]
     Active Substance: MYCOPHENOLATE MOFETIL\MYCOPHENOLATE MOFETIL HYDROCHLORIDE
     Dosage: UNK
  9. MAGNE B6 [Concomitant]
     Active Substance: MAGNESIUM\PYRIDOXINE
     Dosage: UNK
  10. INEXIUM (ESOMEPRAZOLE SODIUM) [Concomitant]
     Active Substance: ESOMEPRAZOLE SODIUM
     Dosage: UNK
  11. BACTRIM [Concomitant]
     Active Substance: SULFAMETHOXAZOLE\TRIMETHOPRIM
     Dosage: UNK
  12. IMOVANE [Concomitant]
     Active Substance: ZOPICLONE
     Dosage: UNK
  13. PRIMPERAN [Concomitant]
     Active Substance: METOCLOPRAMIDE HYDROCHLORIDE
     Dosage: UNK
  14. BENZATHINE PHENOXYMETHYL PENICILLIN [Concomitant]
     Active Substance: PENICILLIN V BENZATHINE
     Dosage: UNK
  15. URSOLVAN [Concomitant]
     Active Substance: URSODIOL
     Dosage: UNK
  16. LASILIX [Concomitant]
     Active Substance: FUROSEMIDE
     Dosage: UNK

REACTIONS (8)
  - Lymphocytic leukaemia [Unknown]
  - Contraindicated product administered [Unknown]
  - Drug interaction [Unknown]
  - Acute kidney injury [Unknown]
  - Transplant rejection [Unknown]
  - Complications of bone marrow transplant [Unknown]
  - Adverse event [Unknown]
  - Rhabdomyolysis [Unknown]

NARRATIVE: CASE EVENT DATE: 20110419
